FAERS Safety Report 10048500 (Version 1)
Quarter: 2014Q1

REPORT INFORMATION
  Report Type: Spontaneous
  Country: DE (occurrence: DE)
  Receive Date: 20140331
  Receipt Date: 20140331
  Transmission Date: 20141002
  Serious: Yes (Other)
  Sender: FDA-Public Use
  Company Number: DE-BRISTOL-MYERS SQUIBB COMPANY-20565206

PATIENT
  Sex: Male

DRUGS (3)
  1. FORXIGA [Suspect]
     Indication: TYPE 2 DIABETES MELLITUS
  2. METFORMIN [Concomitant]
  3. GLP-1 [Concomitant]
     Dosage: GLUCAGON-LIKE PEPTIDE-1 RECEPTORS AGONISTS

REACTIONS (2)
  - Abdominal pain [Unknown]
  - Ketoacidosis [Unknown]
